FAERS Safety Report 26117056 (Version 1)
Quarter: 2025Q4

REPORT INFORMATION
  Report Type: Report from Study
  Country: US (occurrence: US)
  Receive Date: 20251203
  Receipt Date: 20251203
  Transmission Date: 20260117
  Serious: Yes (Other)
  Sender: ACCORD
  Company Number: US-SMPA-2025SPA014301

PATIENT
  Age: 86 Year
  Sex: Male

DRUGS (9)
  1. IBANDRONATE SODIUM [Suspect]
     Active Substance: IBANDRONATE SODIUM
     Indication: Product used for unknown indication
     Dosage: UNK
     Route: 048
  2. RELUGOLIX [Suspect]
     Active Substance: RELUGOLIX
     Indication: Prostate cancer
     Dosage: 360 MG, SINGLE
     Route: 048
     Dates: start: 20250225, end: 20250225
  3. AMLODIPINE [Concomitant]
     Active Substance: AMLODIPINE BESYLATE
     Dosage: UNK
  4. LISINOPRIL [Concomitant]
     Active Substance: LISINOPRIL
     Dosage: UNK
  5. VITAMINS [Concomitant]
     Active Substance: VITAMINS
     Dosage: UNK
  6. DAROLUTAMIDE [Concomitant]
     Active Substance: DAROLUTAMIDE
     Dosage: UNK
  7. MINERALS [Concomitant]
     Active Substance: MINERALS
     Dosage: UNK
  8. RESTORIL [Concomitant]
     Active Substance: TEMAZEPAM
     Dosage: UNK
  9. RELUGOLIX [Suspect]
     Active Substance: RELUGOLIX
     Indication: Prostate cancer
     Dosage: 120 MG, QD
     Route: 048
     Dates: start: 20250226

REACTIONS (8)
  - Osteonecrosis of jaw [Unknown]
  - Metastases to bone [Unknown]
  - Metastases to lymph nodes [Unknown]
  - Dental implantation [Unknown]
  - Prostatic specific antigen increased [Unknown]
  - Dyspnoea [Unknown]
  - Fatigue [Not Recovered/Not Resolved]
  - Product dose omission issue [Unknown]
